FAERS Safety Report 9934819 (Version 2)
Quarter: 2014Q2

REPORT INFORMATION
  Report Type: Spontaneous
  Country: IT (occurrence: IT)
  Receive Date: 20140228
  Receipt Date: 20140428
  Transmission Date: 20141212
  Serious: Yes (Other)
  Sender: FDA-Public Use
  Company Number: PHHY2014IT023820

PATIENT
  Sex: Female

DRUGS (5)
  1. GLIVEC [Suspect]
     Indication: GRAFT VERSUS HOST DISEASE
     Dosage: 100 MG, DAILY
     Route: 048
     Dates: start: 20131212, end: 20140107
  2. GLIVEC [Suspect]
     Indication: OFF LABEL USE
  3. RAPAMUNE [Suspect]
     Indication: GRAFT VERSUS HOST DISEASE
     Dosage: 2 MG, CYCLIC
     Route: 048
     Dates: start: 20130315, end: 20140102
  4. RAPAMUNE [Suspect]
     Indication: OFF LABEL USE
     Dosage: UNK UKN, UNK
  5. NOXAFIL [Concomitant]
     Dosage: 15 ML, UNK
     Route: 048
     Dates: start: 20130315, end: 20140102

REACTIONS (3)
  - Metabolic acidosis [Recovering/Resolving]
  - Oedema [Recovering/Resolving]
  - Renal failure acute [Recovering/Resolving]
